FAERS Safety Report 10484630 (Version 2)
Quarter: 2014Q4

REPORT INFORMATION
  Report Type: Report from Study
  Country: BR (occurrence: BR)
  Receive Date: 20140930
  Receipt Date: 20141007
  Transmission Date: 20150528
  Serious: Yes (Death, Hospitalization)
  Sender: FDA-Public Use
  Company Number: PHHY2011BR122936

PATIENT
  Age: 55 Year
  Sex: Male

DRUGS (5)
  1. EVEROLIMUS [Suspect]
     Active Substance: EVEROLIMUS
     Indication: NEUROENDOCRINE TUMOUR
     Dosage: 5 MG, UNK
     Route: 048
     Dates: start: 20110605
  2. LOPERAMIDE [Concomitant]
     Active Substance: LOPERAMIDE
     Indication: DIARRHOEA
     Dosage: UNK UKN, UNK
     Route: 065
  3. SANDOSTATIN [Concomitant]
     Active Substance: OCTREOTIDE ACETATE
     Indication: PRODUCT USED FOR UNKNOWN INDICATION
     Dosage: UNK UKN, UNK
     Route: 065
     Dates: start: 20061127
  4. ATENOL [Concomitant]
     Active Substance: ATENOLOL
     Indication: HYPERTENSION
     Dosage: UNK UKN, UNK
     Route: 065
  5. TYLEX                              /00116401/ [Concomitant]
     Active Substance: ACETAMINOPHEN\CODEINE PHOSPHATE
     Indication: PAIN
     Dosage: UNK UKN, UNK
     Route: 065

REACTIONS (5)
  - Hypophosphataemia [Fatal]
  - Ascites [Fatal]
  - Malignant neoplasm progression [Fatal]
  - Hypomagnesaemia [Fatal]
  - Dehydration [Fatal]

NARRATIVE: CASE EVENT DATE: 20110621
